FAERS Safety Report 15551942 (Version 1)
Quarter: 2018Q4

REPORT INFORMATION
  Report Type: Report from Study
  Country: US (occurrence: US)
  Receive Date: 20181025
  Receipt Date: 20181025
  Transmission Date: 20190205
  Serious: Yes (Other)
  Sender: FDA-Public Use
  Company Number: US-TESARO, INC-US-2018TSO03635

PATIENT
  Sex: Female

DRUGS (3)
  1. ZEJULA [Suspect]
     Active Substance: NIRAPARIB
     Indication: FALLOPIAN TUBE CANCER
     Dosage: 100 MG, QD
     Route: 048
     Dates: start: 20171130
  2. ZEJULA [Suspect]
     Active Substance: NIRAPARIB
     Dosage: 200 MG TUESDAY, THURSDAY AND SATURDAY ALTERNATING WITH 100, QD THE REST OF THE DAYS
     Route: 048
     Dates: start: 201807
  3. ZEJULA [Suspect]
     Active Substance: NIRAPARIB
     Dosage: 200 MG EXCEPT 100 MG ON THURSDAY
     Route: 048
     Dates: start: 20171130

REACTIONS (4)
  - Inappropriate schedule of product administration [Not Recovered/Not Resolved]
  - Neoplasm progression [Not Recovered/Not Resolved]
  - Carbohydrate antigen 125 increased [Not Recovered/Not Resolved]
  - Haemoglobin decreased [Not Recovered/Not Resolved]
